FAERS Safety Report 5592507-9 (Version None)
Quarter: 2008Q1

REPORT INFORMATION
  Report Type: 
  Country: None (occurrence: None)
  Receive Date: 20080115
  Receipt Date: 20080103
  Transmission Date: 20080703
  Serious: Yes (Other)
  Sender: FDA-Public Use
  Company Number: US-PFIZER INC-2007108981

PATIENT
  Sex: Female
  Weight: 62.727 kg

DRUGS (5)
  1. CHANTIX [Suspect]
     Indication: SMOKING CESSATION THERAPY
     Route: 048
     Dates: start: 20071206, end: 20071225
  2. PLAVIX [Concomitant]
  3. NEXIUM [Concomitant]
  4. ANTIDEPRESSANTS [Concomitant]
  5. VITAMINS [Concomitant]

REACTIONS (8)
  - COUGH [None]
  - FLATULENCE [None]
  - MALAISE [None]
  - NASAL CONGESTION [None]
  - NAUSEA [None]
  - PULMONARY CONGESTION [None]
  - VOMITING [None]
  - WHEEZING [None]
